FAERS Safety Report 5082774-2 (Version None)
Quarter: 2006Q3

REPORT INFORMATION
  Report Type: 
  Country: None (occurrence: None)
  Receive Date: 20060720
  Receipt Date: 20060208
  Transmission Date: 20061208
  Serious: Yes (Other)
  Sender: FDA-Public Use
  Company Number: 2006022100

PATIENT
  Age: 48 Year
  Sex: Male

DRUGS (1)
  1. CELEBREX [Suspect]
     Indication: PROCEDURAL PAIN
     Dosage: 200 MG (200 MG,1 IN 1 D)

REACTIONS (1)
  - STEVENS-JOHNSON SYNDROME [None]
